FAERS Safety Report 25548317 (Version 1)
Quarter: 2025Q3

REPORT INFORMATION
  Report Type: Spontaneous
  Country: KR (occurrence: KR)
  Receive Date: 20250714
  Receipt Date: 20250714
  Transmission Date: 20251021
  Serious: Yes (Hospitalization)
  Sender: ROCHE
  Company Number: KR-ROCHE-10000054475

PATIENT
  Age: 78 Year
  Sex: Male

DRUGS (1)
  1. VABYSMO [Suspect]
     Active Substance: FARICIMAB-SVOA
     Indication: Neovascular age-related macular degeneration
     Route: 050

REACTIONS (3)
  - Corneal thinning [Unknown]
  - Corneal perforation [Unknown]
  - Ophthalmic herpes simplex [Unknown]

NARRATIVE: CASE EVENT DATE: 20240725
